FAERS Safety Report 5081711-4 (Version None)
Quarter: 2006Q3

REPORT INFORMATION
  Report Type: 
  Country: None (occurrence: None)
  Receive Date: 20060816
  Receipt Date: 20060703
  Transmission Date: 20061208
  Serious: Yes (Hospitalization, Other)
  Sender: FDA-Public Use
  Company Number: US-AMGEN-STX185216

PATIENT
  Sex: Female

DRUGS (3)
  1. ENBREL [Suspect]
     Indication: RHEUMATOID ARTHRITIS
     Route: 058
     Dates: start: 20000501
  2. METHOTREXATE [Concomitant]
     Route: 048
     Dates: start: 20020101
  3. PREDNISONE [Concomitant]

REACTIONS (6)
  - ASTHENIA [None]
  - COMPRESSION FRACTURE [None]
  - CYSTOPEXY [None]
  - MUSCULOSKELETAL PAIN [None]
  - OOPHORECTOMY [None]
  - UTERINE CANCER [None]
